FAERS Safety Report 19885813 (Version 1)
Quarter: 2021Q3

REPORT INFORMATION
  Report Type: Spontaneous
  Country: CZ (occurrence: CZ)
  Receive Date: 20210927
  Receipt Date: 20210927
  Transmission Date: 20211014
  Serious: Yes (Other)
  Sender: FDA-Public Use
  Company Number: CZ-MYLANLABS-2021M1063512

PATIENT
  Sex: Female

DRUGS (6)
  1. OLANZAPINE. [Suspect]
     Active Substance: OLANZAPINE
     Indication: SCHIZOPHRENIA
     Dosage: UNK
     Route: 065
  2. ARIPIPRAZOLE. [Suspect]
     Active Substance: ARIPIPRAZOLE
     Indication: SCHIZOPHRENIA
     Dosage: UNK
  3. ZUCLOPENTHIXOL [Concomitant]
     Active Substance: ZUCLOPENTHIXOL
     Indication: SCHIZOPHRENIA
     Dosage: TREATMENT ON LONG?TERM BASIS WITH DEPOT PRODUCT
  4. QUETIAPINE. [Suspect]
     Active Substance: QUETIAPINE
     Indication: SCHIZOPHRENIA
     Dosage: UNK
     Route: 065
  5. RISPERIDONE. [Suspect]
     Active Substance: RISPERIDONE
     Indication: SCHIZOPHRENIA
     Dosage: TRIED TO STRENGTHEN ANTIPSYCHOTIC THERAPY UP TO THE DOSE OF 6 MG
     Route: 065
  6. RISPERIDONE. [Suspect]
     Active Substance: RISPERIDONE
     Dosage: 6 MILLIGRAM
     Route: 065

REACTIONS (7)
  - Blood prolactin increased [Unknown]
  - Cardiovascular disorder [Unknown]
  - Drug intolerance [Unknown]
  - Sedation [Recovered/Resolved]
  - Akathisia [Recovered/Resolved]
  - Sexual dysfunction [Recovering/Resolving]
  - Weight increased [Unknown]
